FAERS Safety Report 20815262 (Version 1)
Quarter: 2022Q2

REPORT INFORMATION
  Report Type: Spontaneous
  Country: US (occurrence: US)
  Receive Date: 20220511
  Receipt Date: 20220511
  Transmission Date: 20220720
  Serious: No
  Sender: FDA-Public Use
  Company Number: US-PFIZER INC-202200140084

PATIENT
  Age: 68 Year
  Sex: Female
  Weight: 88.677 kg

DRUGS (2)
  1. XELJANZ [Suspect]
     Active Substance: TOFACITINIB CITRATE
     Indication: Arthritis
     Dosage: 5 MG, 2X/DAY
  2. XELJANZ [Suspect]
     Active Substance: TOFACITINIB CITRATE
     Indication: Colitis

REACTIONS (9)
  - Gait disturbance [Unknown]
  - Malaise [Unknown]
  - Fall [Unknown]
  - Off label use [Unknown]
  - Contusion [Unknown]
  - Limb injury [Unknown]
  - Head injury [Unknown]
  - Back injury [Unknown]
  - Memory impairment [Unknown]

NARRATIVE: CASE EVENT DATE: 20220101
